FAERS Safety Report 10592625 (Version 1)
Quarter: 2014Q4

REPORT INFORMATION
  Report Type: Spontaneous
  Country: BR (occurrence: BR)
  Receive Date: 20141119
  Receipt Date: 20141119
  Transmission Date: 20150529
  Serious: Yes (Hospitalization)
  Sender: FDA-Public Use
  Company Number: BR-BAYER-2014-169165

PATIENT
  Age: 27 Year
  Sex: Female
  Weight: 65 kg

DRUGS (4)
  1. YASMIN [Suspect]
     Active Substance: DROSPIRENONE\ETHINYL ESTRADIOL
     Indication: ABDOMINAL PAIN
     Dosage: UNK
     Dates: end: 2012
  2. YASMIN [Suspect]
     Active Substance: DROSPIRENONE\ETHINYL ESTRADIOL
     Indication: MENSTRUAL CYCLE MANAGEMENT
  3. ALLURENE [Suspect]
     Active Substance: DIENOGEST
     Indication: ENDOMETRIOSIS
     Dosage: 1 DF, QD
     Route: 048
     Dates: start: 201305
  4. YASMIN [Suspect]
     Active Substance: DROSPIRENONE\ETHINYL ESTRADIOL
     Indication: CONTRACEPTION
     Dosage: UNK
     Route: 048
     Dates: start: 2002, end: 2010

REACTIONS (11)
  - Onychoclasis [Recovered/Resolved]
  - Dry skin [Recovered/Resolved]
  - Hair colour changes [Not Recovered/Not Resolved]
  - Endometriosis [Not Recovered/Not Resolved]
  - Alopecia [Recovered/Resolved]
  - Premenstrual syndrome [Recovered/Resolved]
  - Crying [Recovered/Resolved]
  - Abdominal pain [Recovered/Resolved]
  - Skin exfoliation [Recovered/Resolved]
  - Seborrhoea [Recovered/Resolved]
  - Incorrect drug administration duration [Recovered/Resolved]

NARRATIVE: CASE EVENT DATE: 2002
